FAERS Safety Report 6241019-8 (Version None)
Quarter: 2009Q2

REPORT INFORMATION
  Report Type: 
  Country: None (occurrence: None)
  Receive Date: 20090623
  Receipt Date: 20090616
  Transmission Date: 20091009
  Serious: Yes (Hospitalization)
  Sender: FDA-Public Use
  Company Number: B0580089A

PATIENT
  Sex: Male

DRUGS (4)
  1. ZINNAT [Suspect]
     Indication: ERYSIPELAS
     Dosage: 500MG TWICE PER DAY
     Route: 065
     Dates: start: 20090602, end: 20090602
  2. RENPRESS [Concomitant]
     Route: 065
  3. AMLODIPINE BESYLATE [Concomitant]
     Route: 065
  4. DETRALEX [Concomitant]
     Route: 065

REACTIONS (3)
  - RASH GENERALISED [None]
  - RASH MACULO-PAPULAR [None]
  - RASH PRURITIC [None]
